FAERS Safety Report 5043942-9 (Version None)
Quarter: 2006Q2

REPORT INFORMATION
  Report Type: 
  Country: None (occurrence: None)
  Receive Date: 20060601
  Receipt Date: 20060419
  Transmission Date: 20061013
  Serious: No
  Sender: FDA-Public Use
  Company Number: 2006-BP-04402BP

PATIENT
  Age: 78 Year
  Sex: Female

DRUGS (8)
  1. SPIRIVA [Suspect]
     Indication: CHRONIC OBSTRUCTIVE PULMONARY DISEASE
     Dosage: 18 MCG (18 MCG, 1 IN 1 D), IH
     Route: 055
     Dates: start: 20060301
  2. AVELOX [Suspect]
     Indication: SINUSITIS
     Dates: start: 20060411, end: 20060418
  3. THEOLAIR [Concomitant]
  4. PULMICORT [Concomitant]
  5. ALBUTEROL SPIROS [Concomitant]
  6. AVALIDE (KARVEA HCT) [Concomitant]
  7. QUININE SULFATE [Concomitant]
  8. LIPITOR [Concomitant]

REACTIONS (4)
  - DRY MOUTH [None]
  - DYSPHAGIA [None]
  - NERVOUSNESS [None]
  - SINUSITIS [None]
